FAERS Safety Report 22232296 (Version 1)
Quarter: 2023Q2

REPORT INFORMATION
  Report Type: Spontaneous
  Country: US (occurrence: None)
  Receive Date: 20230420
  Receipt Date: 20230420
  Transmission Date: 20230722
  Serious: No
  Sender: FDA-Public Use
  Company Number: US-ROCHE-3076968

PATIENT
  Sex: Female

DRUGS (3)
  1. ESBRIET [Suspect]
     Active Substance: PIRFENIDONE
     Indication: Idiopathic pulmonary fibrosis
     Dosage: FOR 7 DAYS
     Route: 048
     Dates: start: 20220310
  2. ESBRIET [Suspect]
     Active Substance: PIRFENIDONE
     Dosage: FOR 7 DAYS
     Route: 048
  3. ESBRIET [Suspect]
     Active Substance: PIRFENIDONE
     Dosage: ONWARDS
     Route: 048

REACTIONS (2)
  - Nausea [Unknown]
  - Headache [Unknown]
